FAERS Safety Report 24896072 (Version 2)
Quarter: 2025Q1

REPORT INFORMATION
  Report Type: Spontaneous
  Country: US (occurrence: US)
  Receive Date: 20250128
  Receipt Date: 20250130
  Transmission Date: 20250409
  Serious: Yes (Other)
  Sender: INCYTE
  Company Number: US-INCYTE CORPORATION-2025IN000478

PATIENT

DRUGS (10)
  1. ZYNYZ [Suspect]
     Active Substance: RETIFANLIMAB-DLWR
     Indication: Angiosarcoma
     Route: 065
     Dates: start: 20231109
  2. ZYNYZ [Suspect]
     Active Substance: RETIFANLIMAB-DLWR
     Indication: Metastases to bone
  3. GEMCITABINE [Suspect]
     Active Substance: GEMCITABINE
     Indication: Angiosarcoma
     Route: 065
     Dates: start: 20231109
  4. GEMCITABINE [Suspect]
     Active Substance: GEMCITABINE
     Indication: Metastases to bone
  5. DOCETAXEL [Suspect]
     Active Substance: DOCETAXEL
     Indication: Angiosarcoma
     Route: 065
     Dates: start: 20231109
  6. DOCETAXEL [Suspect]
     Active Substance: DOCETAXEL
     Indication: Metastases to bone
  7. CABOZANTINIB [Suspect]
     Active Substance: CABOZANTINIB
     Indication: Angiosarcoma
     Route: 065
     Dates: start: 20240703
  8. CABOZANTINIB [Suspect]
     Active Substance: CABOZANTINIB
     Indication: Metastases to bone
  9. NIVOLUMAB [Suspect]
     Active Substance: NIVOLUMAB
     Indication: Angiosarcoma
     Route: 065
     Dates: start: 20240708
  10. NIVOLUMAB [Suspect]
     Active Substance: NIVOLUMAB
     Indication: Metastases to bone

REACTIONS (3)
  - Malignant neoplasm progression [Unknown]
  - Neuropathy peripheral [Recovered/Resolved]
  - Off label use [Unknown]

NARRATIVE: CASE EVENT DATE: 20231109
